FAERS Safety Report 6967186-6 (Version None)
Quarter: 2010Q3

REPORT INFORMATION
  Report Type: 
  Country: None (occurrence: None)
  Receive Date: 20100907
  Receipt Date: 20100824
  Transmission Date: 20110219
  Serious: Yes (Other)
  Sender: FDA-Public Use
  Company Number: US-RANBAXY-2010US-36919

PATIENT

DRUGS (3)
  1. ISOTRETINOIN [Suspect]
     Indication: PRODUCT USED FOR UNKNOWN INDICATION
     Dosage: 40 MG, QD
     Route: 065
     Dates: start: 20070606, end: 20070101
  2. ISOTRETINOIN [Suspect]
     Dosage: 40 MG, BID
     Route: 065
     Dates: start: 20081029
  3. CLARAVIS [Suspect]
     Indication: PRODUCT USED FOR UNKNOWN INDICATION
     Dosage: 40 MG, QD
     Route: 065
     Dates: start: 20080424, end: 20080101

REACTIONS (2)
  - ABORTION INDUCED [None]
  - PREGNANCY [None]
